FAERS Safety Report 5186257-0 (Version None)
Quarter: 2006Q4

REPORT INFORMATION
  Report Type: 
  Country: None (occurrence: None)
  Receive Date: 20061212
  Receipt Date: 20061129
  Transmission Date: 20070319
  Serious: Yes (Hospitalization)
  Sender: FDA-Public Use
  Company Number: 2006BH014234

PATIENT
  Age: 50 Year
  Sex: Female
  Weight: 89 kg

DRUGS (10)
  1. GAMMAGARD S/D [Suspect]
     Indication: POLYMYOSITIS
     Dosage: 1000 MG/KG; EVERY DAY; IV
     Route: 042
     Dates: start: 20060912, end: 20060912
  2. GAMMAGARD S/D [Suspect]
  3. IMUREL [Concomitant]
  4. CORTANCYL [Concomitant]
  5. POTASSIUM CHLORIDE [Concomitant]
  6. IDEOS [Concomitant]
  7. AVLOCARDYL [Concomitant]
  8. OMEPRAZOLE [Concomitant]
  9. INSULATARD NPH HUMAN [Concomitant]
  10. NOVORAPID [Concomitant]

REACTIONS (1)
  - PULMONARY EMBOLISM [None]
